FAERS Safety Report 16287085 (Version 1)
Quarter: 2019Q2

REPORT INFORMATION
  Report Type: Spontaneous
  Country: BR (occurrence: BR)
  Receive Date: 20190508
  Receipt Date: 20190508
  Transmission Date: 20190711
  Serious: Yes (Death, Other)
  Sender: FDA-Public Use
  Company Number: BR-PFIZER INC-2019192642

PATIENT
  Age: 96 Year
  Sex: Female

DRUGS (2)
  1. LORAX (LORAZEPAM) [Suspect]
     Active Substance: LORAZEPAM
     Indication: ANXIETY
     Dosage: UNK
  2. LORAX (LORAZEPAM) [Suspect]
     Active Substance: LORAZEPAM
     Indication: SLEEP DISORDER

REACTIONS (2)
  - Lower limb fracture [Unknown]
  - Post procedural complication [Fatal]
